FAERS Safety Report 19351415 (Version 1)
Quarter: 2021Q2

REPORT INFORMATION
  Report Type: Spontaneous
  Country: FR (occurrence: FR)
  Receive Date: 20210531
  Receipt Date: 20210531
  Transmission Date: 20210717
  Serious: Yes (Life-Threatening, Hospitalization)
  Sender: FDA-Public Use
  Company Number: FR-TEVA-2021-FR-1914831

PATIENT
  Age: 59 Year
  Sex: Female

DRUGS (2)
  1. CYCLOPHOSPHAMIDE. [Suspect]
     Active Substance: CYCLOPHOSPHAMIDE
     Indication: BREAST CANCER
     Route: 065
  2. DOCETAXEL. [Suspect]
     Active Substance: DOCETAXEL
     Indication: BREAST CANCER
     Route: 065

REACTIONS (7)
  - Hypertension [Unknown]
  - Scleroderma renal crisis [Unknown]
  - Right ventricular failure [Unknown]
  - Thrombotic microangiopathy [Unknown]
  - Systemic scleroderma [Not Recovered/Not Resolved]
  - Posterior reversible encephalopathy syndrome [Unknown]
  - Interstitial lung disease [Unknown]
